FAERS Safety Report 4738248-9 (Version None)
Quarter: 2005Q3

REPORT INFORMATION
  Report Type: 
  Country: None (occurrence: None)
  Receive Date: 20050805
  Receipt Date: 20050725
  Transmission Date: 20060218
  Serious: Yes (Life-Threatening, Hospitalization)
  Sender: FDA-Public Use
  Company Number: 2005107378

PATIENT
  Age: 72 Year
  Sex: Male

DRUGS (7)
  1. ARTHROTEC (DICLOFENAC SODIUM, MISOPROSOL) [Suspect]
     Indication: PAIN
     Dosage: (3 IN 1 D), ORAL
     Route: 048
     Dates: start: 20050428
  2. TRIMETHOPRIM SULFATE (TRIMETHOPRIM SULFATE) [Suspect]
     Indication: URINARY TRACT INFECTION
     Dosage: 400 MG (200 MG, 2 IN 1 D), ORAL
     Route: 048
  3. SERTRALINE (SERTRALINE) [Concomitant]
  4. RAMIPRIL [Concomitant]
  5. SPIRONOLACTONE [Concomitant]
  6. WARFARIN SODIUM [Concomitant]
  7. SIMVASTATIN [Concomitant]

REACTIONS (3)
  - INTERNATIONAL NORMALISED RATIO INCREASED [None]
  - MUSCLE TWITCHING [None]
  - RENAL FAILURE ACUTE [None]
